FAERS Safety Report 25699774 (Version 1)
Quarter: 2025Q3

REPORT INFORMATION
  Report Type: Spontaneous
  Country: US (occurrence: US)
  Receive Date: 20250819
  Receipt Date: 20250819
  Transmission Date: 20251021
  Serious: Yes (Life-Threatening, Hospitalization)
  Sender: MYLAN
  Company Number: US-MYLANLABS-2025M1069801

PATIENT
  Age: 30 Year

DRUGS (21)
  1. ALPRAZOLAM [Suspect]
     Active Substance: ALPRAZOLAM
     Indication: Anxiety
  2. VALPROATE [Suspect]
     Active Substance: VALPROIC ACID
     Indication: Depressive symptom
  3. BUPRENORPHINE\NALOXONE [Suspect]
     Active Substance: BUPRENORPHINE\NALOXONE
     Indication: Pain
     Dosage: UNK, BID
  4. HALOPERIDOL DECANOATE [Suspect]
     Active Substance: HALOPERIDOL DECANOATE
     Indication: Anxiety
  5. SELEGILINE [Suspect]
     Active Substance: SELEGILINE
     Indication: Depressive symptom
     Dosage: 6 MILLIGRAM, QD
  6. OLANZAPINE [Suspect]
     Active Substance: OLANZAPINE
     Indication: Anxiety
  7. OLANZAPINE [Suspect]
     Active Substance: OLANZAPINE
     Indication: Insomnia
  8. OLANZAPINE [Suspect]
     Active Substance: OLANZAPINE
     Indication: Nausea
  9. KETAMINE [Suspect]
     Active Substance: KETAMINE
     Indication: Depressive symptom
  10. HYDROMORPHONE [Suspect]
     Active Substance: HYDROMORPHONE
     Indication: Pain
     Dosage: 6 MILLIGRAM, Q3H
  11. HYDROMORPHONE [Suspect]
     Active Substance: HYDROMORPHONE
     Indication: Pain
     Dosage: 0.5 MILLIGRAM, QH
  12. ESCITALOPRAM [Concomitant]
     Active Substance: ESCITALOPRAM OXALATE
     Indication: Sleep disorder
  13. MIRTAZAPINE [Concomitant]
     Active Substance: MIRTAZAPINE
     Indication: Sleep disorder
  14. TRAZODONE [Concomitant]
     Active Substance: TRAZODONE HYDROCHLORIDE
     Indication: Sleep disorder
  15. GABAPENTIN [Concomitant]
     Active Substance: GABAPENTIN
     Indication: Product used for unknown indication
  16. METHYLPHENIDATE [Concomitant]
     Active Substance: METHYLPHENIDATE
     Indication: Disturbance in attention
     Dosage: 10 MILLIGRAM, BID
  17. VENLAFAXINE [Concomitant]
     Active Substance: VENLAFAXINE HYDROCHLORIDE
     Indication: Depressive symptom
  18. VALPROIC ACID [Concomitant]
     Active Substance: VALPROIC ACID
     Indication: Depressive symptom
  19. SERTRALINE [Concomitant]
     Active Substance: SERTRALINE HYDROCHLORIDE
     Indication: Depressive symptom
  20. QUETIAPINE [Concomitant]
     Active Substance: QUETIAPINE
     Indication: Depressive symptom
  21. LORAZEPAM [Concomitant]
     Active Substance: LORAZEPAM
     Indication: Anxiety

REACTIONS (4)
  - Sedation complication [Unknown]
  - Ileus [Unknown]
  - Drug ineffective [Unknown]
  - Intentional product misuse [Unknown]
